FAERS Safety Report 16830789 (Version 1)
Quarter: 2019Q3

REPORT INFORMATION
  Report Type: Spontaneous
  Country: US (occurrence: US)
  Receive Date: 20190730
  Receipt Date: 20190730
  Transmission Date: 20191005
  Serious: Yes (Death)
  Sender: FDA-Public Use
  Company Number: None

PATIENT
  Age: 72 Year
  Sex: Male
  Weight: 96.5 kg

DRUGS (2)
  1. GEMCITABINE HYDROCHLORIDE. [Suspect]
     Active Substance: GEMCITABINE HYDROCHLORIDE
     Dates: end: 20190723
  2. CISPLATIN. [Suspect]
     Active Substance: CISPLATIN
     Dates: end: 20190723

REACTIONS (1)
  - Cardiac death [None]

NARRATIVE: CASE EVENT DATE: 20190724
